FAERS Safety Report 12474328 (Version 1)
Quarter: 2016Q2

REPORT INFORMATION
  Report Type: Spontaneous
  Country: US (occurrence: None)
  Receive Date: 20160616
  Receipt Date: 20160616
  Transmission Date: 20160815
  Serious: No
  Sender: FDA-Public Use
  Company Number: None

PATIENT
  Sex: Male

DRUGS (1)
  1. METFORMIN [Suspect]
     Active Substance: METFORMIN HYDROCHLORIDE

REACTIONS (6)
  - Neoplasm malignant [None]
  - Dyspepsia [None]
  - Diarrhoea [None]
  - Myocardial infarction [None]
  - Food poisoning [None]
  - Shoulder arthroplasty [None]
